FAERS Safety Report 4380397-1 (Version None)
Quarter: 2004Q2

REPORT INFORMATION
  Report Type: 
  Country: None (occurrence: None)
  Receive Date: 20040616
  Receipt Date: 20040616
  Transmission Date: 20050107
  Serious: Yes (Other)
  Sender: FDA-Public Use
  Company Number: None

PATIENT
  Age: 26 Year
  Sex: Male
  Weight: 90.7194 kg

DRUGS (1)
  1. IBUPROFEN [Suspect]
     Indication: DENTAL TREATMENT
     Dosage: 600 MG QID PO
     Route: 048
     Dates: start: 20040615

REACTIONS (1)
  - PERIORBITAL OEDEMA [None]
